FAERS Safety Report 6443645-X (Version None)
Quarter: 2009Q4

REPORT INFORMATION
  Report Type: 
  Country: None (occurrence: None)
  Receive Date: 20091117
  Receipt Date: 20091103
  Transmission Date: 20100525
  Serious: Yes (Hospitalization)
  Sender: FDA-Public Use
  Company Number: PHEH2009US14961

PATIENT
  Sex: Female
  Weight: 60.317 kg

DRUGS (8)
  1. RECLAST [Suspect]
     Indication: OSTEOPOROSIS
     Dosage: 5 MG IV
     Dates: start: 20091015, end: 20091015
  2. CALCIUM [Concomitant]
     Dosage: UNK, UNK
     Route: 065
  3. VITAMIN D [Concomitant]
     Dosage: UNK, UNK
     Route: 065
  4. NEXIUM [Concomitant]
     Indication: GASTROOESOPHAGEAL REFLUX DISEASE
     Dosage: UNK, UNK
     Route: 065
  5. VITAMIN B-12 [Concomitant]
     Indication: VITAMIN B12 DEFICIENCY
     Dosage: UNK, TWICE PER MONTH
  6. LISINOPRIL [Concomitant]
     Indication: HYPERTENSION
  7. XANAX [Concomitant]
     Indication: ANXIETY
     Dosage: 0.5 MG, PRN
  8. TYLENOL (CAPLET) [Concomitant]

REACTIONS (11)
  - ACTIVITIES OF DAILY LIVING IMPAIRED [None]
  - EATING DISORDER [None]
  - EYE PAIN [None]
  - HEADACHE [None]
  - IMPAIRED DRIVING ABILITY [None]
  - MOVEMENT DISORDER [None]
  - MYALGIA [None]
  - PAIN [None]
  - UVEITIS [None]
  - VISUAL ACUITY REDUCED [None]
  - WEIGHT DECREASED [None]
